FAERS Safety Report 9938707 (Version 2)
Quarter: 2014Q4

REPORT INFORMATION
  Report Type: Spontaneous
  Country: TR (occurrence: TR)
  Receive Date: 20140303
  Receipt Date: 20141124
  Transmission Date: 20150529
  Serious: Yes (Hospitalization, Other)
  Sender: FDA-Public Use
  Company Number: TR-NOVOPROD-400963

PATIENT
  Age: 31 Year
  Sex: Female
  Weight: 96 kg

DRUGS (4)
  1. ESTROFEM [Suspect]
     Active Substance: ESTRADIOL CYPIONATE
     Indication: INFERTILITY
     Dosage: 1 TAB, TID
     Route: 048
     Dates: start: 20140123, end: 20140410
  2. LEVEMIR [Suspect]
     Active Substance: INSULIN DETEMIR
     Indication: GESTATIONAL DIABETES
     Dosage: 32 U, QD
     Route: 058
     Dates: start: 20140203, end: 20140410
  3. FOLIDOCE [Concomitant]
     Active Substance: CYANOCOBALAMIN\FOLIC ACID
     Indication: VITAMIN SUPPLEMENTATION
     Dosage: 1X1 DAILY
     Route: 048
     Dates: start: 20140123, end: 20140410
  4. NOVORAPID [Suspect]
     Active Substance: INSULIN ASPART
     Indication: GESTATIONAL DIABETES
     Dosage: 38 U, QD
     Route: 058
     Dates: start: 20140127, end: 20140410

REACTIONS (4)
  - Exposure during pregnancy [Recovered/Resolved]
  - Blood glucose abnormal [Recovered/Resolved]
  - Foetal death [Recovered/Resolved]
  - Hypertension [Recovered/Resolved]

NARRATIVE: CASE EVENT DATE: 20140123
